FAERS Safety Report 5899464-6 (Version None)
Quarter: 2008Q3

REPORT INFORMATION
  Report Type: 
  Country: None (occurrence: None)
  Receive Date: 20080926
  Receipt Date: 20080924
  Transmission Date: 20090109
  Serious: Yes (Hospitalization, Other)
  Sender: FDA-Public Use
  Company Number: DE-WYE-G01832208

PATIENT
  Sex: Male
  Weight: 128 kg

DRUGS (7)
  1. TREVILOR RETARD [Suspect]
     Indication: DEPRESSION
     Route: 048
     Dates: start: 20060901, end: 20080117
  2. TREVILOR RETARD [Suspect]
     Route: 048
     Dates: start: 20080118, end: 20080629
  3. TREVILOR RETARD [Suspect]
     Route: 048
     Dates: start: 20080630, end: 20080701
  4. TREVILOR RETARD [Suspect]
     Route: 048
     Dates: start: 20080701, end: 20080101
  5. TREVILOR RETARD [Suspect]
     Route: 048
  6. MIRTAZAPINE [Concomitant]
     Indication: DEPRESSION
     Route: 048
     Dates: start: 20050801
  7. MIRTAZAPINE [Concomitant]
     Indication: PAIN

REACTIONS (3)
  - ABASIA [None]
  - MUSCLE SPASMS [None]
  - MYALGIA [None]
